FAERS Safety Report 16674275 (Version 9)
Quarter: 2020Q2

REPORT INFORMATION
  Report Type: Report from Study
  Country: CO (occurrence: CO)
  Receive Date: 20190806
  Receipt Date: 20200521
  Transmission Date: 20200713
  Serious: Yes (Hospitalization)
  Sender: FDA-Public Use
  Company Number: CO-INCYTE CORPORATION-2019IN006168

PATIENT

DRUGS (7)
  1. JAKAVI [Suspect]
     Active Substance: RUXOLITINIB
     Dosage: 20 MG, QD
     Route: 048
  2. JAKAVI [Suspect]
     Active Substance: RUXOLITINIB
     Indication: MYELOFIBROSIS
     Dosage: 20 MG, QD (DAILY)
     Route: 048
     Dates: start: 2018
  3. JAKAVI [Suspect]
     Active Substance: RUXOLITINIB
     Dosage: 20 MG, QD
     Route: 048
     Dates: start: 20190506, end: 20190606
  4. JAKAVI [Suspect]
     Active Substance: RUXOLITINIB
     Dosage: 40 MG, QD (ONCE DAILY)
     Route: 048
     Dates: start: 20190407
  5. JAKAVI [Suspect]
     Active Substance: RUXOLITINIB
     Dosage: 20 MG, Q12H
     Route: 048
  6. JAKAVI [Suspect]
     Active Substance: RUXOLITINIB
     Dosage: 20 MG, QD
     Route: 048
     Dates: start: 20190407
  7. TRAMADOL. [Concomitant]
     Active Substance: TRAMADOL
     Indication: PRODUCT USED FOR UNKNOWN INDICATION
     Dosage: UNK
     Route: 065

REACTIONS (23)
  - Muscle spasms [Recovered/Resolved]
  - Pyrexia [Unknown]
  - Influenza [Unknown]
  - Splenomegaly [Unknown]
  - Abdominal discomfort [Unknown]
  - Fatigue [Unknown]
  - Dysstasia [Unknown]
  - Hypoaesthesia [Unknown]
  - Back pain [Unknown]
  - Inappropriate schedule of product administration [Unknown]
  - Cough [Unknown]
  - Headache [Recovered/Resolved]
  - Dizziness [Unknown]
  - Insomnia [Unknown]
  - Depressed mood [Unknown]
  - Rhinitis [Unknown]
  - Chest pain [Unknown]
  - Pharyngeal inflammation [Unknown]
  - Boredom [Unknown]
  - Hypophagia [Unknown]
  - Feeling abnormal [Unknown]
  - Malaise [Unknown]
  - Hyperhidrosis [Unknown]

NARRATIVE: CASE EVENT DATE: 2018
